FAERS Safety Report 25793044 (Version 1)
Quarter: 2025Q3

REPORT INFORMATION
  Report Type: Spontaneous
  Country: EU (occurrence: EU)
  Receive Date: 20250911
  Receipt Date: 20250911
  Transmission Date: 20251021
  Serious: Yes (Hospitalization, Other)
  Sender: PFIZER
  Company Number: EU-SANDOZ-SDZ2025ES063807

PATIENT
  Age: 45 Year
  Sex: Female

DRUGS (5)
  1. METHYLPREDNISOLONE SODIUM SUCCINATE [Suspect]
     Active Substance: METHYLPREDNISOLONE SODIUM SUCCINATE
     Dosage: 1 MG, 1X/DAY (1 MG, QD MEGABOLUSES FOR FIVE DAYS)
     Route: 065
  2. NATALIZUMAB [Suspect]
     Active Substance: NATALIZUMAB
     Route: 065
     Dates: start: 20250507
  3. NATALIZUMAB [Suspect]
     Active Substance: NATALIZUMAB
     Route: 065
     Dates: start: 20250604
  4. NATALIZUMAB [Suspect]
     Active Substance: NATALIZUMAB
     Route: 065
     Dates: start: 20250706
  5. NATALIZUMAB [Suspect]
     Active Substance: NATALIZUMAB
     Route: 065
     Dates: start: 20250827

REACTIONS (7)
  - Spinal cord injury [Unknown]
  - Retinal artery occlusion [Unknown]
  - Condition aggravated [Unknown]
  - Muscle spasms [Unknown]
  - Urinary tract infection [Unknown]
  - Muscular weakness [Unknown]
  - Myalgia [Unknown]

NARRATIVE: CASE EVENT DATE: 20250101
